FAERS Safety Report 5278888-4 (Version None)
Quarter: 2007Q1

REPORT INFORMATION
  Report Type: 
  Country: None (occurrence: None)
  Receive Date: 20070321
  Receipt Date: 20070308
  Transmission Date: 20070707
  Serious: Yes (Death, Hospitalization, Other)
  Sender: FDA-Public Use
  Company Number: 2007-00719

PATIENT
  Age: 61 Year
  Sex: Female

DRUGS (5)
  1. VELCADE [Suspect]
     Indication: MULTIPLE MYELOMA
     Dates: start: 20061228, end: 20070102
  2. DURAGESIC-100 [Suspect]
     Indication: PAIN
     Dosage: 75.00 UG, TRANSDERMAL
     Route: 062
     Dates: end: 20070123
  3. LASIX [Concomitant]
  4. DAFALGAN (PARACETAMOL) [Concomitant]
  5. OMEPRAZOLE [Concomitant]

REACTIONS (8)
  - ACUTE PULMONARY OEDEMA [None]
  - ASTHENIA [None]
  - CONFUSIONAL STATE [None]
  - HYPERAMMONAEMIA [None]
  - SEPTIC SHOCK [None]
  - SOMNOLENCE [None]
  - STAPHYLOCOCCAL BACTERAEMIA [None]
  - THROMBOCYTOPENIA [None]
